FAERS Safety Report 7497180-0 (Version None)
Quarter: 2011Q2

REPORT INFORMATION
  Report Type: 
  Country: None (occurrence: None)
  Receive Date: 20110523
  Receipt Date: 20110518
  Transmission Date: 20111010
  Serious: Yes (Disabling, Other)
  Sender: FDA-Public Use
  Company Number: US-ELI_LILLY_AND_COMPANY-US201105005557

PATIENT
  Age: 37 Year
  Sex: Female

DRUGS (2)
  1. HUMULIN R [Suspect]
     Dosage: UNK, PRN
  2. HUMULIN R [Suspect]
     Indication: DIABETES MELLITUS
     Dosage: UNK, PRN

REACTIONS (3)
  - VISUAL IMPAIRMENT [None]
  - CEREBROVASCULAR ACCIDENT [None]
  - HEMIPLEGIA [None]
